FAERS Safety Report 10169295 (Version 1)
Quarter: 2014Q2

REPORT INFORMATION
  Report Type: Spontaneous
  Country: IT (occurrence: IT)
  Receive Date: 20140513
  Receipt Date: 20140513
  Transmission Date: 20141212
  Serious: Yes (Hospitalization)
  Sender: FDA-Public Use
  Company Number: IT-SA-2014SA058057

PATIENT
  Age: 77 Year
  Sex: Female

DRUGS (2)
  1. LASIX [Suspect]
     Indication: POLYURIA
     Route: 065
     Dates: start: 20120101, end: 20140215
  2. CARDICOR [Concomitant]
     Route: 048

REACTIONS (2)
  - Hyponatraemia [Recovered/Resolved]
  - Hyperkalaemia [Recovered/Resolved]
